FAERS Safety Report 13988129 (Version 1)
Quarter: 2017Q3

REPORT INFORMATION
  Report Type: Spontaneous
  Country: CA (occurrence: CA)
  Receive Date: 20170919
  Receipt Date: 20170919
  Transmission Date: 20171128
  Serious: Yes (Other)
  Sender: FDA-Public Use
  Company Number: CA-PFIZER INC-2003AP02180

PATIENT
  Age: 34 Year
  Sex: Male

DRUGS (13)
  1. CLARITHROMYCIN. [Concomitant]
     Active Substance: CLARITHROMYCIN
     Dosage: UNK
     Dates: start: 199901
  2. AMOXICILLIN-CLAVULANIC ACID [Concomitant]
     Active Substance: AMOXICILLIN\CLAVULANIC ACID
     Dosage: UNK
     Dates: start: 199901
  3. CIPROFLOXACIN. [Concomitant]
     Active Substance: CIPROFLOXACIN
     Indication: BACTERIAL INFECTION
     Dosage: 750 MG, 2X/DAY
     Route: 048
     Dates: start: 19990302, end: 19990307
  4. MEROPENEM. [Suspect]
     Active Substance: MEROPENEM
     Indication: SHUNT INFECTION
     Dosage: 2 G, UNK (EVERY EIGHT HOURS)
     Route: 042
     Dates: start: 19990225, end: 19990308
  5. CLOXACILLIN [Concomitant]
     Active Substance: CLOXACILLIN
     Dosage: UNK
     Dates: start: 199901
  6. CEFOTAXIME [Concomitant]
     Active Substance: CEFOTAXIME SODIUM
     Indication: MENINGITIS BACTERIAL
     Dosage: UNK
     Route: 042
     Dates: start: 19990420, end: 19990428
  7. VANCOMYCIN [Concomitant]
     Active Substance: VANCOMYCIN
     Indication: INFECTION
     Dosage: UNK
     Route: 042
     Dates: start: 19990222, end: 19990226
  8. MEROPENEM. [Suspect]
     Active Substance: MEROPENEM
     Indication: MENINGITIS
     Dosage: 2 G, UNK (EVERY EIGHT HOURS)- 2-WEEK COURSE OF THERAPY
     Route: 042
     Dates: start: 19990427
  9. METRONIDAZOLE. [Concomitant]
     Active Substance: METRONIDAZOLE
     Indication: BACTERIAL INFECTION
     Dosage: 500 MG, 2X/DAY
     Route: 048
     Dates: start: 19990308, end: 19990420
  10. VANCOMYCIN [Concomitant]
     Active Substance: VANCOMYCIN
     Indication: MENINGITIS BACTERIAL
     Dosage: UNK
     Route: 042
     Dates: start: 19990420, end: 19990428
  11. CIPROFLOXACIN. [Concomitant]
     Active Substance: CIPROFLOXACIN
     Dosage: 500 MG, 2X/DAY
     Route: 048
     Dates: start: 19990308, end: 19990420
  12. CEFTRIAXONE. [Concomitant]
     Active Substance: CEFTRIAXONE
     Indication: MENINGITIS BACTERIAL
     Dosage: UNK
     Route: 042
     Dates: start: 19990420, end: 19990428
  13. CEFOTAXIME [Concomitant]
     Active Substance: CEFOTAXIME SODIUM
     Indication: INFECTION
     Dosage: UNK
     Route: 042
     Dates: start: 19990222, end: 19990226

REACTIONS (2)
  - Hepatic enzyme increased [Recovering/Resolving]
  - Serum sickness-like reaction [Recovering/Resolving]

NARRATIVE: CASE EVENT DATE: 19990506
